FAERS Safety Report 5518616-8 (Version None)
Quarter: 2007Q4

REPORT INFORMATION
  Report Type: 
  Country: None (occurrence: None)
  Receive Date: 20071113
  Receipt Date: 20071101
  Transmission Date: 20080405
  Serious: Yes (Death, Hospitalization)
  Sender: FDA-Public Use
  Company Number: VISP-UK-0711S-0471

PATIENT
  Age: 62 Year
  Sex: Male

DRUGS (26)
  1. VISIPAQUE [Suspect]
     Indication: DRUG USE FOR UNKNOWN INDICATION
     Dosage: 100 ML, SINGLE DOSE; SINGLE DOSE
     Dates: start: 20050511, end: 20050511
  2. VISIPAQUE [Suspect]
     Indication: DRUG USE FOR UNKNOWN INDICATION
     Dosage: 100 ML, SINGLE DOSE; SINGLE DOSE
     Dates: start: 20050629, end: 20050629
  3. GADOBUTROL      (GADOVIST) [Concomitant]
  4. MEGLUMINE DIATRIZOATE SODIUM + MEGLUMINE DIATRIZOATE  (GASTROGRAFIN) [Concomitant]
  5. DIMEGLUMINE GADOPENTETATE  (MAGNEVIST) [Concomitant]
  6. NALOXONE [Concomitant]
  7. IOPROMIDE       (ULTRAVIST) [Concomitant]
  8. ALFACALCIDOL [Concomitant]
  9. AMLODIPINE [Concomitant]
  10. ASPIRIN [Concomitant]
  11. BECLOMETHASONE DIPROPIONATE [Concomitant]
  12. BISACODYL [Concomitant]
  13. HYOSCINE N-BUTYLBROMIDE (BUSCOPAN) [Concomitant]
  14. CALCIUM CARBONATE [Concomitant]
  15. CLOPIDOGREL [Concomitant]
  16. FUROSEMIDE [Concomitant]
  17. ISPAGHULA HUSK      (FYBOGEL) [Concomitant]
  18. GLYCERYL TRINITRATE [Concomitant]
  19. INSULIN [Concomitant]
  20. ISOSORBIDE MONONITRATE [Concomitant]
  21. LIDOCAINE        (LIGNOCAINE) [Concomitant]
  22. MEBEVERINE [Concomitant]
  23. NICORANDIL [Concomitant]
  24. OMEPRAZOLE [Concomitant]
  25. QUININE SULFATE [Concomitant]
  26. SIMVASTATIN [Concomitant]

REACTIONS (11)
  - ASCITES [None]
  - CARDIAC FAILURE [None]
  - DEPRESSED LEVEL OF CONSCIOUSNESS [None]
  - DIABETES MELLITUS INADEQUATE CONTROL [None]
  - DIALYSIS [None]
  - FLUID OVERLOAD [None]
  - MIOSIS [None]
  - MULTI-ORGAN FAILURE [None]
  - NEPHROPATHY TOXIC [None]
  - RENAL FAILURE [None]
  - SLEEP DISORDER [None]
